FAERS Safety Report 12361350 (Version 4)
Quarter: 2017Q3

REPORT INFORMATION
  Report Type: Spontaneous
  Country: US (occurrence: US)
  Receive Date: 20160512
  Receipt Date: 20170803
  Transmission Date: 20171127
  Serious: No
  Sender: FDA-Public Use
  Company Number: US-SA-2016SA019320

PATIENT
  Age: 62 Year
  Sex: Female
  Weight: 97.6 kg

DRUGS (16)
  1. PRALUENT [Suspect]
     Active Substance: ALIROCUMAB
     Indication: HYPERCHOLESTEROLAEMIA
     Route: 058
     Dates: start: 20151218, end: 20161118
  2. HYGROTON [Concomitant]
     Active Substance: CHLORTHALIDONE
     Dosage: STRENGTH: 25 MG
     Route: 048
  3. PANTHENOL/RETINOL/THIAMINE HYDROCHLORIDE/ASCORBIC ACID/ERGOCALCIFEROL/FOLIC ACID/RIBOFLAVIN/NICOTINA [Concomitant]
     Route: 048
  4. GLUCOPHAGE XR [Concomitant]
     Active Substance: METFORMIN HYDROCHLORIDE
     Route: 048
  5. MOMETASONE [Concomitant]
     Active Substance: MOMETASONE
     Route: 065
  6. ALIROCUMAB PREFILLED PEN [Suspect]
     Active Substance: ALIROCUMAB
     Indication: HYPERCHOLESTEROLAEMIA
     Dates: start: 20151218, end: 20161118
  7. PRALUENT [Suspect]
     Active Substance: ALIROCUMAB
     Indication: HYPERCHOLESTEROLAEMIA
     Route: 058
     Dates: start: 20151218, end: 20161118
  8. PRALUENT [Suspect]
     Active Substance: ALIROCUMAB
     Indication: HYPERCHOLESTEROLAEMIA
     Route: 058
     Dates: start: 20151218, end: 20161118
  9. ALIROCUMAB PREFILLED PEN [Suspect]
     Active Substance: ALIROCUMAB
     Indication: HYPERCHOLESTEROLAEMIA
     Dates: start: 20151218, end: 20161118
  10. BIOTIN [Concomitant]
     Active Substance: BIOTIN
     Dosage: STRENGTH: 1 MG
     Route: 065
  11. ALIROCUMAB PREFILLED PEN [Suspect]
     Active Substance: ALIROCUMAB
     Indication: HYPERCHOLESTEROLAEMIA
     Dates: start: 20151218, end: 20161118
  12. SYNTHROID [Concomitant]
     Active Substance: LEVOTHYROXINE SODIUM
     Dosage: STRENGTH: 125 MCG
     Route: 048
  13. VITAMIN D/CALCIUM [Concomitant]
     Route: 048
  14. VITAMIN B12 [Concomitant]
     Active Substance: CYANOCOBALAMIN
     Route: 048
  15. MAGNESIUM [Concomitant]
     Active Substance: MAGNESIUM
     Dosage: STRENGTH: 250 MG
     Route: 048
  16. VITAMIN D3 [Concomitant]
     Active Substance: CHOLECALCIFEROL
     Dosage: SYTRENGTH: 2000 UNITS
     Route: 065

REACTIONS (11)
  - Myalgia [Recovered/Resolved]
  - Injection site pain [Unknown]
  - Injection site mass [Recovered/Resolved]
  - Drug administered at inappropriate site [Unknown]
  - Feeling abnormal [Recovered/Resolved]
  - Injury associated with device [Unknown]
  - Memory impairment [Unknown]
  - Abdominal distension [Unknown]
  - Diarrhoea [Unknown]
  - Rash [Unknown]
  - Arthralgia [Unknown]

NARRATIVE: CASE EVENT DATE: 201607
